FAERS Safety Report 7750412-3 (Version None)
Quarter: 2011Q3

REPORT INFORMATION
  Report Type: 
  Country: None (occurrence: None)
  Receive Date: 20110914
  Receipt Date: 20110906
  Transmission Date: 20111222
  Serious: Yes (Other)
  Sender: FDA-Public Use
  Company Number: US-ASTRAZENECA-2011SE52871

PATIENT
  Age: 73 Year
  Sex: Female

DRUGS (2)
  1. NEXIUM [Suspect]
     Route: 048
  2. SMOKING CESSATION DRUG [Concomitant]

REACTIONS (5)
  - OESOPHAGEAL NEOPLASM [None]
  - DYSPEPSIA [None]
  - GASTROINTESTINAL NEOPLASM [None]
  - DIABETES MELLITUS [None]
  - WEIGHT DECREASED [None]
